FAERS Safety Report 7841187-8 (Version None)
Quarter: 2011Q4

REPORT INFORMATION
  Report Type: 
  Country: None (occurrence: None)
  Receive Date: 20111025
  Receipt Date: 20111018
  Transmission Date: 20120403
  Serious: Yes (Death, Other)
  Sender: FDA-Public Use
  Company Number: US-CELGENEUS-163-21660-11102275

PATIENT

DRUGS (3)
  1. BEVACIZUMAB [Suspect]
     Dosage: 10 MILLIGRAM/KILOGRAM
     Route: 041
  2. BEVACIZUMAB [Suspect]
     Dosage: 15 MILLIGRAM/KILOGRAM
     Route: 041
  3. ABRAXANE [Suspect]
     Dosage: 260 MILLIGRAM/SQ. METER
     Route: 041

REACTIONS (10)
  - DEATH [None]
  - GASTROINTESTINAL PERFORATION [None]
  - PROTEINURIA [None]
  - HYPERTENSION [None]
  - EMBOLISM [None]
  - LEFT VENTRICULAR DYSFUNCTION [None]
  - FEBRILE NEUTROPENIA [None]
  - HAEMORRHAGE [None]
  - WOUND DEHISCENCE [None]
  - PERIPHERAL SENSORY NEUROPATHY [None]
